FAERS Safety Report 18640346 (Version 4)
Quarter: 2021Q1

REPORT INFORMATION
  Report Type: Spontaneous
  Country: BR (occurrence: BR)
  Receive Date: 20201221
  Receipt Date: 20210325
  Transmission Date: 20210419
  Serious: Yes (Other)
  Sender: FDA-Public Use
  Company Number: BR-CELLTRION INC.-2020BR033471

PATIENT

DRUGS (6)
  1. REMSIMA [Suspect]
     Active Substance: INFLIXIMAB
     Dosage: UNK
     Dates: start: 20210319
  2. PREDNISONE. [Concomitant]
     Active Substance: PREDNISONE
     Dosage: UNK
     Route: 048
  3. REMSIMA [Suspect]
     Active Substance: INFLIXIMAB
     Dosage: LAST APPLICATION, OCCURRED IN THE LAST MONTH (DATE UNSPECIFIED)
  4. VITAMIN D [COLECALCIFEROL] [Concomitant]
     Active Substance: CHOLECALCIFEROL
     Dosage: UNK
     Route: 048
  5. PREDNISONA [Concomitant]
     Active Substance: PREDNISONE
     Dosage: 40 MG, CAN REMOVE LITTLE BY LITTLE USED FOR STOMACH
  6. REMSIMA [Suspect]
     Active Substance: INFLIXIMAB
     Indication: RHEUMATOID ARTHRITIS
     Dosage: START DATE: ABOUT 1 YEAR AND A HALF AT 4 AMPOULS OF THE PRODUCT EVERY 6 WEEKS BETWEEN VIA ENDOVENOUS

REACTIONS (13)
  - Off label use [Unknown]
  - Bone pain [Recovered/Resolved]
  - Malaise [Recovered/Resolved]
  - Visual impairment [Recovering/Resolving]
  - Insomnia [Recovering/Resolving]
  - Headache [Recovered/Resolved]
  - Product availability issue [Unknown]
  - Pyrexia [Recovered/Resolved]
  - Product dose omission issue [Unknown]
  - Uveitis [Unknown]
  - Pain [Recovering/Resolving]
  - Influenza [Recovered/Resolved]
  - Therapy interrupted [Unknown]

NARRATIVE: CASE EVENT DATE: 202009
